FAERS Safety Report 4388627-7 (Version None)
Quarter: 2004Q2

REPORT INFORMATION
  Report Type: 
  Country: None (occurrence: None)
  Receive Date: 20040624
  Receipt Date: 20040616
  Transmission Date: 20050107
  Serious: Yes (Hospitalization)
  Sender: FDA-Public Use
  Company Number: US-JNJFOC-20040604438

PATIENT
  Age: 60 Year
  Sex: Female

DRUGS (6)
  1. DURAGESIC [Suspect]
     Indication: PAIN
     Dosage: 25 UG /HR, 1 IN 72 HOUR, TRANSDERMAL
     Route: 062
     Dates: start: 20040201
  2. BEXTRA (BUCINDOLOL HYDROCHLORIDE) TABELTS [Concomitant]
  3. HYZAAR (HYZAAR) TABLETS [Concomitant]
  4. SINGULAIR [Concomitant]
  5. ZOLOFT [Concomitant]
  6. COUMADIN [Concomitant]

REACTIONS (1)
  - NO ADVERSE DRUG EFFECT [None]
